FAERS Safety Report 4662623-4 (Version None)
Quarter: 2005Q2

REPORT INFORMATION
  Report Type: 
  Country: None (occurrence: None)
  Receive Date: 20050516
  Receipt Date: 20050112
  Transmission Date: 20051028
  Serious: No
  Sender: FDA-Public Use
  Company Number: 2005PK00101

PATIENT
  Age: 912 Month
  Sex: Female
  Weight: 71.5 kg

DRUGS (4)
  1. IRESSA [Suspect]
     Indication: NON-SMALL CELL LUNG CANCER STAGE IV
     Route: 048
     Dates: start: 20040217
  2. BRINERDIN [Concomitant]
     Indication: HYPERTENSION
     Route: 048
  3. EUTHYROX [Concomitant]
     Indication: HYPOTHYROIDISM
     Route: 048
  4. MARCOUMAR [Concomitant]
     Indication: PROPHYLAXIS
     Route: 048

REACTIONS (1)
  - SICCA SYNDROME [None]
